FAERS Safety Report 7510749-X (Version None)
Quarter: 2011Q2

REPORT INFORMATION
  Report Type: 
  Country: None (occurrence: None)
  Receive Date: 20110530
  Receipt Date: 20110525
  Transmission Date: 20111010
  Serious: Yes (Other)
  Sender: FDA-Public Use
  Company Number: PHFR2011GB03290

PATIENT

DRUGS (2)
  1. RADIOTHERAPY [Concomitant]
  2. ZOLEDRONIC ACID [Suspect]
     Indication: BREAST CANCER
     Dosage: UNK
     Route: 065

REACTIONS (1)
  - OSTEONECROSIS OF JAW [None]
